FAERS Safety Report 6376675-7 (Version None)
Quarter: 2009Q3

REPORT INFORMATION
  Report Type: 
  Country: None (occurrence: None)
  Receive Date: 20090925
  Receipt Date: 20090918
  Transmission Date: 20100115
  Serious: Yes (Death, Hospitalization, Other)
  Sender: FDA-Public Use
  Company Number: NL-ROCHE-657565

PATIENT
  Age: 60 Year
  Sex: Female

DRUGS (10)
  1. CELLCEPT [Suspect]
     Dosage: DOSE: 500-1000 MG
     Route: 065
  2. CELLCEPT [Suspect]
     Dosage: DOSE LOWERED TO STANDARD LEVELS
     Route: 065
  3. MABTHERA [Suspect]
     Route: 065
  4. COTRIM [Suspect]
     Route: 065
  5. PROGRAF [Suspect]
     Route: 065
  6. PROGRAF [Suspect]
     Dosage: DOSE LOWERED TO STANDARD LEVELS
     Route: 065
  7. PREDNISOLONE [Suspect]
     Route: 065
  8. PREDNISOLONE [Suspect]
     Dosage: DOSE LOWERED TO STANDARD LEVELS
     Route: 065
  9. ACYCLOVIR [Concomitant]
     Indication: ANTIVIRAL PROPHYLAXIS
     Route: 048
  10. ACYCLOVIR [Concomitant]
     Route: 048

REACTIONS (6)
  - ACTINOMYCOSIS [None]
  - APHTHOUS STOMATITIS [None]
  - ASPERGILLOSIS [None]
  - ESCHERICHIA INFECTION [None]
  - HYPOGAMMAGLOBULINAEMIA [None]
  - THERAPEUTIC AGENT TOXICITY [None]
